FAERS Safety Report 14166018 (Version 1)
Quarter: 2017Q4

REPORT INFORMATION
  Report Type: Spontaneous
  Country: GB (occurrence: GB)
  Receive Date: 20171107
  Receipt Date: 20171107
  Transmission Date: 20180321
  Serious: Yes (Hospitalization)
  Sender: FDA-Public Use
  Company Number: GB-LPDUSPRD-20171510

PATIENT
  Age: 21 Year
  Sex: Female
  Weight: 70 kg

DRUGS (1)
  1. FERINJECT [Suspect]
     Active Substance: FERRIC CARBOXYMALTOSE
     Dosage: 1 GM
     Route: 042
     Dates: start: 20171011, end: 20171011

REACTIONS (6)
  - Hypotension [Not Recovered/Not Resolved]
  - Nausea [Recovering/Resolving]
  - Pyrexia [Recovering/Resolving]
  - Tachycardia [Not Recovered/Not Resolved]
  - Exposure during pregnancy [Unknown]
  - Influenza like illness [Not Recovered/Not Resolved]

NARRATIVE: CASE EVENT DATE: 20171011
